FAERS Safety Report 9116684 (Version 1)
Quarter: 2013Q1

REPORT INFORMATION
  Report Type: Spontaneous
  Country: FR (occurrence: FR)
  Receive Date: 20130225
  Receipt Date: 20130225
  Transmission Date: 20140127
  Serious: Yes (Hospitalization, Other)
  Sender: FDA-Public Use
  Company Number: FR-ASTRAZENECA-2013SE11693

PATIENT
  Age: 13 Month
  Sex: Female

DRUGS (1)
  1. SYNAGIS [Suspect]
     Indication: BRONCHIOLITIS
     Route: 030

REACTIONS (3)
  - Bronchiolitis [Unknown]
  - Convulsion [Unknown]
  - Pyrexia [Unknown]
